FAERS Safety Report 18822458 (Version 1)
Quarter: 2021Q1

REPORT INFORMATION
  Report Type: Spontaneous
  Country: JP (occurrence: JP)
  Receive Date: 20210202
  Receipt Date: 20210202
  Transmission Date: 20210419
  Serious: Yes (Other)
  Sender: FDA-Public Use
  Company Number: JP-SUNOVION-2020DSP013736

PATIENT
  Age: 33 Year
  Sex: Female
  Weight: 65.2 kg

DRUGS (19)
  1. LATUDA [Interacting]
     Active Substance: LURASIDONE HYDROCHLORIDE
     Dosage: 20 MG, QD
     Route: 048
     Dates: start: 20201115
  2. SHAKUYAKUKANZOTO [Interacting]
     Active Substance: HERBALS
     Indication: PRODUCT USED FOR UNKNOWN INDICATION
     Dosage: 2.5 G, QD
     Route: 048
  3. TRAZODONE HYDROCHLORIDE. [Interacting]
     Active Substance: TRAZODONE HYDROCHLORIDE
     Indication: PRODUCT USED FOR UNKNOWN INDICATION
     Dosage: 50 MG, HS
     Route: 048
  4. BELSOMRA [Interacting]
     Active Substance: SUVOREXANT
     Dosage: 20 MG, HS
     Route: 048
     Dates: start: 20200915
  5. QUETIAPINE. [Interacting]
     Active Substance: QUETIAPINE
     Dosage: 6.25 MG, AS NECESSARY
     Route: 048
     Dates: start: 20201110
  6. LORAZEPAM. [Interacting]
     Active Substance: LORAZEPAM
     Dosage: 1 MG, AS NECESSARY
     Route: 048
     Dates: start: 20201222
  7. BIPERIDEN HYDROCHLORIDE [Interacting]
     Active Substance: BIPERIDEN HYDROCHLORIDE
     Indication: PRODUCT USED FOR UNKNOWN INDICATION
     Dosage: 1 MG, HS
     Route: 048
     Dates: start: 20200915
  8. BELSOMRA [Interacting]
     Active Substance: SUVOREXANT
     Indication: PRODUCT USED FOR UNKNOWN INDICATION
     Dosage: 15 MG, HS
     Route: 048
     Dates: end: 20200914
  9. LORAZEPAM. [Interacting]
     Active Substance: LORAZEPAM
     Dosage: 2 MG, QD
     Route: 048
     Dates: start: 20200929, end: 20201005
  10. LORAZEPAM. [Interacting]
     Active Substance: LORAZEPAM
     Dosage: 1 MG, AS NECESSARY
     Route: 048
     Dates: start: 20201124
  11. LORAZEPAM. [Interacting]
     Active Substance: LORAZEPAM
     Indication: PRODUCT USED FOR UNKNOWN INDICATION
     Dosage: 2 MG, QD
     Route: 048
     Dates: end: 20200914
  12. LORAZEPAM. [Interacting]
     Active Substance: LORAZEPAM
     Dosage: 1 MG, AS NECESSARY
     Route: 048
     Dates: start: 20201110
  13. LATUDA [Suspect]
     Active Substance: LURASIDONE HYDROCHLORIDE
     Indication: BIPOLAR DISORDER
     Dosage: 10 MG, QD
     Route: 048
     Dates: start: 20200908, end: 20200914
  14. LORAZEPAM. [Interacting]
     Active Substance: LORAZEPAM
     Dosage: 2 MG, QD
     Route: 048
     Dates: start: 20201013, end: 20201019
  15. LORAZEPAM. [Interacting]
     Active Substance: LORAZEPAM
     Dosage: 1 MG, AS NECESSARY
     Route: 048
     Dates: start: 20201027
  16. LORAZEPAM. [Interacting]
     Active Substance: LORAZEPAM
     Dosage: 1 MG, AS NECESSARY
     Route: 048
     Dates: start: 20201208
  17. LORAZEPAM. [Interacting]
     Active Substance: LORAZEPAM
     Dosage: 1 MG, AS NECESSARY
     Route: 048
     Dates: start: 20210105
  18. QUETIAPINE. [Interacting]
     Active Substance: QUETIAPINE
     Indication: PRODUCT USED FOR UNKNOWN INDICATION
     Dosage: 6.25 MG, HS
     Route: 048
     Dates: end: 20200928
  19. LITHIUM CARBONATE. [Interacting]
     Active Substance: LITHIUM CARBONATE
     Indication: PRODUCT USED FOR UNKNOWN INDICATION
     Dosage: 400 MG, BID
     Route: 048

REACTIONS (2)
  - Hyperprolactinaemia [Not Recovered/Not Resolved]
  - Drug interaction [Not Recovered/Not Resolved]

NARRATIVE: CASE EVENT DATE: 20200929
